FAERS Safety Report 25083734 (Version 1)
Quarter: 2025Q1

REPORT INFORMATION
  Report Type: Spontaneous
  Country: US (occurrence: None)
  Receive Date: 20250314
  Receipt Date: 20250314
  Transmission Date: 20250409
  Serious: Yes (Hospitalization)
  Sender: FDA-CTU
  Company Number: None

PATIENT
  Age: 43 Year
  Sex: Female

DRUGS (1)
  1. GATTEX [Suspect]
     Active Substance: TEDUGLUTIDE\WATER
     Indication: Short-bowel syndrome
     Dosage: 5 MG QD INJECTABLE
     Dates: start: 20230814, end: 20250227

REACTIONS (3)
  - Diarrhoea [None]
  - Abdominal pain [None]
  - Pancreatitis [None]

NARRATIVE: CASE EVENT DATE: 20250227
